FAERS Safety Report 5010406-8 (Version None)
Quarter: 2006Q2

REPORT INFORMATION
  Report Type: 
  Country: None (occurrence: None)
  Receive Date: 20060404
  Receipt Date: 20051223
  Transmission Date: 20061013
  Serious: No
  Sender: FDA-Public Use
  Company Number: US200512004059

PATIENT
  Age: 60 Year
  Sex: Male

DRUGS (3)
  1. CYMBALTA [Suspect]
     Dosage: 30 MG
     Dates: start: 20050101
  2. ZOLOFT [Concomitant]
  3. CELEBREX [Concomitant]

REACTIONS (1)
  - DRUG SCREEN POSITIVE [None]
